FAERS Safety Report 19032262 (Version 3)
Quarter: 2021Q2

REPORT INFORMATION
  Report Type: Report from Study
  Country: DE (occurrence: DE)
  Receive Date: 20210319
  Receipt Date: 20210519
  Transmission Date: 20210717
  Serious: Yes (Hospitalization)
  Sender: FDA-Public Use
  Company Number: DE-ROCHE-2790975

PATIENT
  Age: 54 Year
  Sex: Male

DRUGS (8)
  1. L?THYROXINE [Concomitant]
     Active Substance: LEVOTHYROXINE
     Indication: HYPOTHYROIDISM
     Route: 048
     Dates: start: 201301
  2. BISOPROLOL [Concomitant]
     Active Substance: BISOPROLOL
     Dosage: TWICE A DAY
     Dates: start: 20210331
  3. EUTHYROX [Concomitant]
     Active Substance: LEVOTHYROXINE SODIUM
     Dosage: MORNING; 1
  4. ENTRECTINIB [Suspect]
     Active Substance: ENTRECTINIB
     Indication: METASTATIC NEOPLASM
     Dosage: 600 MG DAILY AS PER PROTOCOL?DATE OF LAST DOSE PRIOR TO AE  02/MAR/2021.
     Route: 048
     Dates: start: 20180814, end: 20210302
  5. MOVICOL [Concomitant]
     Active Substance: POLYETHYLENE GLYCOL 3350\POTASSIUM CHLORIDE\SODIUM BICARBONATE\SODIUM CHLORIDE
     Indication: CONSTIPATION
  6. RAMIPRIL. [Concomitant]
     Active Substance: RAMIPRIL
     Dosage: MORNING: 1
  7. ADENURIC [Concomitant]
     Active Substance: FEBUXOSTAT
     Dosage: MORNING: 1
  8. CANDESARTAN. [Concomitant]
     Active Substance: CANDESARTAN
     Dosage: ONCE
     Dates: start: 20210331

REACTIONS (1)
  - Left ventricular dysfunction [Recovered/Resolved with Sequelae]

NARRATIVE: CASE EVENT DATE: 20210303
